FAERS Safety Report 9786271 (Version 3)
Quarter: 2014Q1

REPORT INFORMATION
  Report Type: Spontaneous
  Country: JP (occurrence: None)
  Receive Date: 20131224
  Receipt Date: 20140212
  Transmission Date: 20141002
  Serious: Yes (Hospitalization, Other)
  Sender: FDA-Public Use
  Company Number: ADR-2013-02314

PATIENT
  Age: 22 Year
  Sex: Male
  Weight: 60 kg

DRUGS (1)
  1. GABALON [Suspect]
     Dosage: 50 MCG SCREENING DOSE

REACTIONS (5)
  - Oedema [None]
  - Paralysis [None]
  - Abasia [None]
  - Akinesia [None]
  - Infusion site oedema [None]
